FAERS Safety Report 9547153 (Version 1)
Quarter: 2013Q3

REPORT INFORMATION
  Report Type: Spontaneous
  Country: US (occurrence: US)
  Receive Date: 20130924
  Receipt Date: 20130924
  Transmission Date: 20140515
  Serious: Yes (Hospitalization)
  Sender: FDA-Public Use
  Company Number: US-ROCHE-1278045

PATIENT
  Sex: Male

DRUGS (3)
  1. CELLCEPT [Suspect]
     Indication: MYASTHENIA GRAVIS
     Dosage: 1500 MG IN THE MORNING AND 1000 MG IN THE EVENING
     Route: 065
     Dates: start: 201303
  2. CELLCEPT [Suspect]
     Route: 065
  3. PREDNISONE [Concomitant]

REACTIONS (3)
  - Hyponatraemia [Unknown]
  - Inappropriate antidiuretic hormone secretion [Unknown]
  - Oedema peripheral [Unknown]
